FAERS Safety Report 23396716 (Version 1)
Quarter: 2024Q1

REPORT INFORMATION
  Report Type: Spontaneous
  Country: US (occurrence: US)
  Receive Date: 20240112
  Receipt Date: 20240112
  Transmission Date: 20240409
  Serious: No
  Sender: FDA-Public Use
  Company Number: US-SA-SAC20240109000404

PATIENT
  Sex: Male

DRUGS (24)
  1. DUPIXENT [Suspect]
     Active Substance: DUPILUMAB
     Indication: Asthma
     Dosage: 200 MG, QOW
     Route: 058
     Dates: start: 20230829
  2. PREDNISONE [Concomitant]
     Active Substance: PREDNISONE
  3. ALBUTEROL SULFATE [Concomitant]
     Active Substance: ALBUTEROL SULFATE
  4. CARVEDILOL [Concomitant]
     Active Substance: CARVEDILOL
  5. CLONAZEPAM [Concomitant]
     Active Substance: CLONAZEPAM
  6. COLCHICINE [Concomitant]
     Active Substance: COLCHICINE
  7. DULOXETINE [Concomitant]
     Active Substance: DULOXETINE
  8. FUROSEMIDE [Concomitant]
     Active Substance: FUROSEMIDE
  9. CLARITHROMYCIN [Concomitant]
     Active Substance: CLARITHROMYCIN
  10. IBUPROFEN [Concomitant]
     Active Substance: IBUPROFEN
  11. IPRATROPIUM [Concomitant]
     Active Substance: IPRATROPIUM
  12. APAP [Concomitant]
     Active Substance: ACETAMINOPHEN
     Dosage: HYDROCO/APAP TAB 7.5-325
  13. PREDNISONE [Concomitant]
     Active Substance: PREDNISONE
  14. JARDIANCE [Concomitant]
     Active Substance: EMPAGLIFLOZIN
  15. KETOROLAC [Concomitant]
     Active Substance: KETOROLAC TROMETHAMINE
  16. LEVEMIR [Concomitant]
     Active Substance: INSULIN DETEMIR
  17. LOSARTAN [Concomitant]
     Active Substance: LOSARTAN
  18. MONTELUKAST [Concomitant]
     Active Substance: MONTELUKAST SODIUM
  19. OZEMPIC [Concomitant]
     Active Substance: SEMAGLUTIDE
  20. SHINGRIX [Concomitant]
     Active Substance: RECOMBINANT VARICELLA ZOSTER VIRUS (VZV) GLYCOPROTEIN E
     Dosage: SHINGRIX INJ 50/0.5ML
  21. SIMVASTATIN [Concomitant]
     Active Substance: SIMVASTATIN
  22. TENIVAC [Concomitant]
     Active Substance: CLOSTRIDIUM TETANI TOXOID ANTIGEN (FORMALDEHYDE INACTIVATED)\CORYNEBACTERIUM DIPHTHERIAE TOXOID ANTI
  23. TWINRIX [Concomitant]
     Active Substance: HEPATITIS A VIRUS STRAIN HM175 ANTIGEN (FORMALDEHYDE INACTIVATED)\HEPATITIS B VIRUS SUBTYPE ADW2 HBS
  24. METHYLPREDNISOLONE [Concomitant]
     Active Substance: METHYLPREDNISOLONE

REACTIONS (4)
  - COVID-19 [Unknown]
  - Headache [Unknown]
  - Insomnia [Unknown]
  - Impaired quality of life [Unknown]
